FAERS Safety Report 8425584-8 (Version None)
Quarter: 2012Q2

REPORT INFORMATION
  Report Type: 
  Country: None (occurrence: None)
  Receive Date: 20120605
  Receipt Date: 20120605
  Transmission Date: 20120825
  Serious: No
  Sender: FDA-Public Use
  Company Number: None

PATIENT
  Sex: Female
  Weight: 58.0604 kg

DRUGS (1)
  1. VYTORIN [Suspect]
     Indication: BLOOD CHOLESTEROL INCREASED
     Dosage: 10/20 ONCE DAILY ORAL
     Route: 048
     Dates: start: 20070101

REACTIONS (4)
  - ARTHRALGIA [None]
  - MUSCLE DISORDER [None]
  - PAIN IN EXTREMITY [None]
  - NECK PAIN [None]
